FAERS Safety Report 8432570-0 (Version None)
Quarter: 2012Q2

REPORT INFORMATION
  Report Type: 
  Country: None (occurrence: None)
  Receive Date: 20120607
  Receipt Date: 20120601
  Transmission Date: 20120825
  Serious: Yes (Other)
  Sender: FDA-Public Use
  Company Number: CL-418-2012

PATIENT
  Age: 70 Year
  Sex: Male

DRUGS (1)
  1. AMIODARONE HCL [Suspect]
     Indication: ARRHYTHMIA SUPRAVENTRICULAR

REACTIONS (2)
  - TACHYARRHYTHMIA [None]
  - HYPERTHYROIDISM [None]
